FAERS Safety Report 5296410-3 (Version None)
Quarter: 2007Q2

REPORT INFORMATION
  Report Type: 
  Country: None (occurrence: None)
  Receive Date: 20070413
  Receipt Date: 20070403
  Transmission Date: 20071010
  Serious: Yes (Congenital Anomaly)
  Sender: FDA-Public Use
  Company Number: GB-ROCHE-491594

PATIENT
  Sex: Male
  Weight: 2.7 kg

DRUGS (5)
  1. INVIRASE [Suspect]
     Indication: HIV INFECTION
     Dates: start: 20060411
  2. COMBIVIR [Suspect]
     Indication: HIV INFECTION
     Dates: start: 20060411
  3. EPZICOM [Suspect]
     Indication: HIV INFECTION
     Dates: end: 20051225
  4. NORVIR [Suspect]
     Indication: HIV INFECTION
     Dates: start: 20060411
  5. VIRAMUNE [Suspect]
     Indication: HIV INFECTION
     Dates: end: 20051225

REACTIONS (3)
  - ALPHA 1 FOETOPROTEIN ABNORMAL [None]
  - DRUG EXPOSURE DURING PREGNANCY [None]
  - LABORATORY TEST ABNORMAL [None]
